FAERS Safety Report 6735356-8 (Version None)
Quarter: 2010Q2

REPORT INFORMATION
  Report Type: 
  Country: None (occurrence: None)
  Receive Date: 20100521
  Receipt Date: 20100511
  Transmission Date: 20101027
  Serious: Yes (Other)
  Sender: FDA-Public Use
  Company Number: AU-WYE-G06121410

PATIENT
  Sex: Male

DRUGS (1)
  1. PRISTIQ [Suspect]

REACTIONS (14)
  - ABNORMAL BEHAVIOUR [None]
  - AGGRESSION [None]
  - ANAL HAEMORRHAGE [None]
  - CONDITION AGGRAVATED [None]
  - CONFUSIONAL STATE [None]
  - EMOTIONAL DISORDER [None]
  - EPISTAXIS [None]
  - ERECTILE DYSFUNCTION [None]
  - HOSTILITY [None]
  - IRRITABILITY [None]
  - PARTNER STRESS [None]
  - TINNITUS [None]
  - TREMOR [None]
  - YAWNING [None]
